FAERS Safety Report 8431238-4 (Version None)
Quarter: 2012Q2

REPORT INFORMATION
  Report Type: 
  Country: None (occurrence: None)
  Receive Date: 20120613
  Receipt Date: 20120607
  Transmission Date: 20120825
  Serious: Yes (Other)
  Sender: FDA-Public Use
  Company Number: US-AMGEN-USASP2011053286

PATIENT
  Age: 84 Year
  Sex: Female
  Weight: 58.6 kg

DRUGS (2)
  1. NPLATE [Suspect]
     Indication: IDIOPATHIC THROMBOCYTOPENIC PURPURA
     Dosage: 350 MUG, QWK
     Route: 058
     Dates: start: 20101130, end: 20111005
  2. DECADRON [Concomitant]
     Indication: IDIOPATHIC THROMBOCYTOPENIC PURPURA

REACTIONS (1)
  - THERAPEUTIC RESPONSE DECREASED [None]
